FAERS Safety Report 15053126 (Version 2)
Quarter: 2018Q3

REPORT INFORMATION
  Report Type: Report from Study
  Country: None (occurrence: TR)
  Receive Date: 20180622
  Receipt Date: 20180704
  Transmission Date: 20181010
  Serious: Yes (Hospitalization)
  Sender: FDA-Public Use
  Company Number: TR-ABBVIE-18K-161-2394702-00

PATIENT
  Age: 68 Year
  Sex: Female
  Weight: 77 kg

DRUGS (8)
  1. DUODOPA [Suspect]
     Active Substance: CARBIDOPA\LEVODOPA
     Dosage: MORNING DOSE (ML) : 5.30, CONTINUOUS DOSE (ML) : 4.60, EXTRA DOSE (ML) : 3,00
     Route: 050
  2. STALEVO [Concomitant]
     Active Substance: CARBIDOPA\ENTACAPONE\LEVODOPA
     Indication: PARKINSON^S DISEASE
     Route: 048
  3. ECOPIRIN [Concomitant]
     Active Substance: ASPIRIN
     Indication: ANTICOAGULANT THERAPY
     Route: 048
  4. PK MERZ [Concomitant]
     Active Substance: AMANTADINE SULFATE
     Indication: PARKINSON^S DISEASE
     Dosage: 2X1/2
     Route: 048
  5. DUODOPA [Suspect]
     Active Substance: CARBIDOPA\LEVODOPA
     Indication: PARKINSON^S DISEASE
     Dosage: MORNING DOSE:7,00 ML, CONTINUOUS DOSE: 4,00 ML, EXTRA DOSE: 2.50 ML
     Route: 050
     Dates: start: 20160502
  6. GLIFOR [Concomitant]
     Active Substance: METFORMIN HYDROCHLORIDE
     Indication: DIABETES MELLITUS
     Route: 048
     Dates: start: 2015
  7. PEXOLA [Concomitant]
     Active Substance: PRAMIPEXOLE DIHYDROCHLORIDE
     Indication: PARKINSON^S DISEASE
     Route: 048
  8. MOTILIUM [Concomitant]
     Active Substance: DOMPERIDONE
     Indication: PARKINSON^S DISEASE
     Route: 048
     Dates: start: 20180130

REACTIONS (2)
  - Dyspnoea [Recovered/Resolved]
  - Lung infection [Recovered/Resolved]

NARRATIVE: CASE EVENT DATE: 20180620
